FAERS Safety Report 8484478 (Version 9)
Quarter: 2013Q2

REPORT INFORMATION
  Report Type: Report from Study
  Country: CA (occurrence: CA)
  Receive Date: 20120330
  Receipt Date: 20130425
  Transmission Date: 20140414
  Serious: Yes (Hospitalization, Other)
  Sender: FDA-Public Use
  Company Number: PHHY2012CA026066

PATIENT
  Age: 82 Year
  Sex: Female

DRUGS (22)
  1. SANDOSTATIN LAR [Suspect]
     Indication: ANAEMIA
     Dosage: 20 MG, QMO
     Route: 030
     Dates: start: 20090101
  2. SANDOSTATIN LAR [Suspect]
     Dosage: 30 MG, ONCE A MONTH
     Route: 030
     Dates: start: 20090101
  3. SANDOSTATIN [Suspect]
     Indication: ANAEMIA
     Route: 058
  4. NITRO-DUR [Concomitant]
     Dosage: UNK UKN, UNK
  5. LASIX [Concomitant]
     Dosage: UNK UKN, UNK
  6. NOVOGESIC [Concomitant]
     Dosage: UNK UKN, DAILY
  7. IRON [Concomitant]
     Dosage: UNK UKN, UNK
  8. ACTONEL [Concomitant]
     Dosage: UNK UKN, UNK
  9. ALDACTONE [Concomitant]
     Dosage: UNK UKN, UNK
  10. SENNA [Concomitant]
     Dosage: UNK UKN, UNK
  11. COVERSYL [Concomitant]
     Dosage: UNK UKN, UNK
  12. PANTOLOC [Concomitant]
     Dosage: 40 MG DAILY
  13. MIRTAZAPINE [Concomitant]
     Dosage: UNK UKN, UNK (30 DAILY)
  14. METOPROLOL [Concomitant]
     Dosage: UNK UKN, UNK
  15. ATIVAN [Concomitant]
     Dosage: 1 MG, UNK
  16. COLACE [Concomitant]
     Dosage: UNK UKN, UNK
  17. TOLEXINE [Concomitant]
     Dosage: 0.067 MG, UNK
  18. OSCAL D [Concomitant]
     Dosage: UNK UKN, BID
  19. ASA [Concomitant]
     Dosage: 80 MG, UNK
  20. ATORVASTATIN [Concomitant]
     Dosage: UNK UKN, UNK
  21. FLOVENT [Concomitant]
     Dosage: UNK UKN, UNK
  22. COUMADIN [Concomitant]
     Dosage: UNK UKN, UNK

REACTIONS (12)
  - General physical health deterioration [Unknown]
  - Palpitations [Unknown]
  - Mitral valve disease mixed [Unknown]
  - Dyspnoea [Unknown]
  - Pulmonary congestion [Unknown]
  - Blood pressure decreased [Unknown]
  - Gastroenteritis [Unknown]
  - Malaise [Unknown]
  - Fatigue [Unknown]
  - Weight decreased [Unknown]
  - Hypotonia [Unknown]
  - Injection site pain [Unknown]
